FAERS Safety Report 16187924 (Version 1)
Quarter: 2019Q2

REPORT INFORMATION
  Report Type: Spontaneous
  Country: JP (occurrence: JP)
  Receive Date: 20190412
  Receipt Date: 20190412
  Transmission Date: 20190711
  Serious: Yes (Other)
  Sender: FDA-Public Use
  Company Number: JP-ALKEM LABORATORIES LIMITED-JP-ALKEM-2018-02946

PATIENT
  Age: 66 Year
  Sex: Female

DRUGS (1)
  1. QUETIAPINE FUMARATE. [Suspect]
     Active Substance: QUETIAPINE FUMARATE
     Indication: SCHIZOPHRENIA
     Dosage: 150 MG, QD
     Route: 065

REACTIONS (4)
  - Autonomic neuropathy [Unknown]
  - Muscle rigidity [Unknown]
  - Blood creatine phosphokinase increased [Recovered/Resolved]
  - Pyrexia [Unknown]
